FAERS Safety Report 4876896-6 (Version None)
Quarter: 2006Q1

REPORT INFORMATION
  Report Type: 
  Country: None (occurrence: None)
  Receive Date: 20060109
  Receipt Date: 20060109
  Transmission Date: 20060701
  Serious: Yes (Life-Threatening, Hospitalization)
  Sender: FDA-Public Use
  Company Number: None

PATIENT
  Age: 46 Year
  Sex: Female
  Weight: 64.8644 kg

DRUGS (11)
  1. GEMZAR [Suspect]
     Indication: PANCREATIC CARCINOMA METASTATIC
     Dosage: 1000 MG/M2 DAY 1 AND 15 IV DRIP
     Route: 041
     Dates: start: 20050811, end: 20051215
  2. CISPLATIN [Suspect]
     Indication: PANCREATIC CARCINOMA METASTATIC
     Dosage: 20 MG/M2 DAY 1 AND 15 IV DRIP
     Route: 041
     Dates: start: 20050811, end: 20051215
  3. BEVACIZUMAB 25 MG/ML GENENTECH [Suspect]
     Indication: PANCREATIC CARCINOMA METASTATIC
     Dosage: 10 MG/LG DAY 1 AND 15 IV DRIP
     Route: 041
     Dates: start: 20050811, end: 20051215
  4. LORAZEPAM [Concomitant]
  5. COMPAZINE [Concomitant]
  6. GRANIESTRON [Concomitant]
  7. DEXAMETHASONE TAB [Concomitant]
  8. AMBIEN [Concomitant]
  9. PROBIOTICS [Concomitant]
  10. PANCREASE [Concomitant]
  11. EXCEDRIN (MIGRAINE) [Concomitant]

REACTIONS (11)
  - ABDOMINAL PAIN [None]
  - ANAEMIA [None]
  - DIZZINESS [None]
  - GASTRIC VARICES [None]
  - HAEMATEMESIS [None]
  - HAEMORRHAGE [None]
  - JAUNDICE [None]
  - LOSS OF CONSCIOUSNESS [None]
  - NAUSEA [None]
  - SPLENIC VEIN THROMBOSIS [None]
  - URTICARIA GENERALISED [None]
